FAERS Safety Report 8007437 (Version 4)
Quarter: 2013Q3

REPORT INFORMATION
  Report Type: Spontaneous
  Country: DE (occurrence: DE)
  Receive Date: 20110624
  Receipt Date: 20130724
  Transmission Date: 20140515
  Serious: Yes (Life-Threatening, Hospitalization)
  Sender: FDA-Public Use
  Company Number: DE-JNJFOC-20110606199

PATIENT
  Age: 51 Year
  Sex: Male

DRUGS (3)
  1. STELARA [Suspect]
     Indication: PITYRIASIS RUBRA PILARIS
     Route: 058
     Dates: start: 20100311, end: 201004
  2. STELARA [Suspect]
     Indication: PITYRIASIS RUBRA PILARIS
     Dosage: 45-90 MG EVERY 8-12 WEEKS
     Route: 058
     Dates: start: 201009, end: 20110210
  3. ACITRETIN [Concomitant]
     Indication: PITYRIASIS RUBRA PILARIS
     Route: 048
     Dates: start: 201102

REACTIONS (2)
  - Anaplastic large-cell lymphoma [Not Recovered/Not Resolved]
  - Off label use [Recovered/Resolved]
